FAERS Safety Report 5828971-7 (Version None)
Quarter: 2008Q3

REPORT INFORMATION
  Report Type: 
  Country: None (occurrence: None)
  Receive Date: 20080731
  Receipt Date: 20080722
  Transmission Date: 20090109
  Serious: Yes (Other)
  Sender: FDA-Public Use
  Company Number: PHHY2008CA09376

PATIENT
  Sex: Female

DRUGS (3)
  1. CLOZARIL [Suspect]
     Indication: BIPOLAR DISORDER
     Dosage: 450 MG, UNK
     Route: 048
     Dates: start: 19970424, end: 20080524
  2. VALPROIC ACID [Concomitant]
  3. EPIVAL [Concomitant]
     Dosage: 1750 G, QD
     Dates: start: 19970101

REACTIONS (7)
  - AGRANULOCYTOSIS [None]
  - ASPIRATION BONE MARROW [None]
  - BIOPSY [None]
  - GRANULOCYTES MATURATION ARREST [None]
  - NEUTROPENIA [None]
  - PANCYTOPENIA [None]
  - THROMBOCYTOPENIA [None]
